FAERS Safety Report 18531015 (Version 1)
Quarter: 2020Q4

REPORT INFORMATION
  Report Type: Spontaneous
  Country: JP (occurrence: JP)
  Receive Date: 20201122
  Receipt Date: 20201122
  Transmission Date: 20210114
  Serious: Yes (Other)
  Sender: FDA-Public Use
  Company Number: JP-JNJFOC-20201127702

PATIENT
  Sex: Male

DRUGS (2)
  1. ERLEADA [Suspect]
     Active Substance: APALUTAMIDE
     Indication: PROSTATE CANCER
     Dosage: DOSE UNKNOWN
     Route: 048
  2. GONAX [Concomitant]
     Active Substance: DEGARELIX
     Dosage: DOSE UNKNOWN
     Route: 065

REACTIONS (1)
  - Bladder cancer [Unknown]
